FAERS Safety Report 8050420-1 (Version None)
Quarter: 2011Q4

REPORT INFORMATION
  Report Type: 
  Country: None (occurrence: None)
  Receive Date: 20111212
  Receipt Date: 20110817
  Transmission Date: 20120403
  Serious: Yes (Other)
  Sender: FDA-Public Use
  Company Number: PHEH2011US01802

PATIENT
  Age: 72 Year
  Sex: Female

DRUGS (10)
  1. OXYBUTYNIN [Concomitant]
  2. INTERFERON BETA-1B [Suspect]
     Indication: MULTIPLE SCLEROSIS
     Dosage: SUBCUTANEOUS
     Route: 058
  3. STOOL SOFTNER (DOCUSATE SODIUM) [Concomitant]
  4. GLATIRAMER ACETATE (GLATIRAMER ACETATE) [Concomitant]
  5. LEVOXYL [Concomitant]
  6. REBIF [Concomitant]
  7. CLONAZEPAM [Concomitant]
  8. MODAFINIL [Concomitant]
  9. BACLOFEN [Concomitant]
  10. INTERFERON BETA-1A [Concomitant]

REACTIONS (2)
  - DEPRESSED MOOD [None]
  - DEPRESSION [None]
